FAERS Safety Report 9172727 (Version 2)
Quarter: 2013Q3

REPORT INFORMATION
  Report Type: Report from Study
  Country: DE (occurrence: DE)
  Receive Date: 20130319
  Receipt Date: 20130722
  Transmission Date: 20140515
  Serious: Yes (Hospitalization)
  Sender: FDA-Public Use
  Company Number: DE-BAXTER-2013BAX009474

PATIENT
  Age: 41 Year
  Sex: Female
  Weight: 63 kg

DRUGS (9)
  1. ENDOXAN 1G [Suspect]
     Indication: BREAST CANCER
     Route: 042
     Dates: start: 20130222
  2. EPIRUBICIN [Suspect]
     Indication: BREAST CANCER
     Route: 042
     Dates: start: 20130222
  3. DEXAMETHASONE [Concomitant]
     Indication: PRODUCT USED FOR UNKNOWN INDICATION
     Route: 065
     Dates: start: 20130222, end: 20130222
  4. DEXAMETHASONE [Concomitant]
     Route: 065
     Dates: start: 20130223, end: 20130225
  5. GRANISETRON HYDROCHLORIDE [Concomitant]
     Indication: PRODUCT USED FOR UNKNOWN INDICATION
     Route: 065
     Dates: start: 20130222, end: 20130222
  6. APREPITANT [Concomitant]
     Indication: PRODUCT USED FOR UNKNOWN INDICATION
     Route: 065
     Dates: start: 20130223, end: 20130224
  7. APREPITANT [Concomitant]
     Route: 065
     Dates: start: 20130222, end: 20130222
  8. APREPITANT [Concomitant]
     Indication: PRODUCT USED FOR UNKNOWN INDICATION
     Route: 065
     Dates: start: 20130222, end: 20130222
  9. APREPITANT [Concomitant]
     Route: 065
     Dates: start: 20130223, end: 20130224

REACTIONS (2)
  - Cough [Recovered/Resolved]
  - Febrile neutropenia [Recovered/Resolved]
